FAERS Safety Report 19000924 (Version 1)
Quarter: 2021Q1

REPORT INFORMATION
  Report Type: Spontaneous
  Country: US (occurrence: US)
  Receive Date: 20210312
  Receipt Date: 20210312
  Transmission Date: 20210420
  Serious: No
  Sender: FDA-Public Use
  Company Number: US-TEVA-2021-US-1884561

PATIENT
  Sex: Female

DRUGS (1)
  1. AJOVY [Suspect]
     Active Substance: FREMANEZUMAB-VFRM
     Indication: MIGRAINE
     Route: 065

REACTIONS (5)
  - Needle issue [Unknown]
  - Injection site rash [Unknown]
  - Device dispensing error [Unknown]
  - Injection site pruritus [Unknown]
  - Muscle discomfort [Unknown]

NARRATIVE: CASE EVENT DATE: 202101
